FAERS Safety Report 17080793 (Version 2)
Quarter: 2020Q1

REPORT INFORMATION
  Report Type: Other
  Country: CZ (occurrence: CZ)
  Receive Date: 20191127
  Receipt Date: 20200305
  Transmission Date: 20200409
  Serious: Yes (Other)
  Sender: FDA-Public Use
  Company Number: CZ-EMD SERONO-9130684

PATIENT
  Age: 50 Year
  Sex: Male
  Weight: 99 kg

DRUGS (8)
  1. METFORMIN [Suspect]
     Active Substance: METFORMIN HYDROCHLORIDE
     Dosage: DOSE REINTRODUCED
     Dates: start: 201806
  2. METFORMIN [Suspect]
     Active Substance: METFORMIN HYDROCHLORIDE
     Indication: TYPE 2 DIABETES MELLITUS
     Dosage: STARTED AFTER SEVEN YEARS OF DIAGNOSIS OF DIABETES AND DAILY DOSE: 2000-2500 MG PER DAY TILL 40 YEAR
     Route: 048
     Dates: start: 2004, end: 2009
  3. PIOGLITAZONE. [Suspect]
     Active Substance: PIOGLITAZONE
     Indication: TYPE 2 DIABETES MELLITUS
     Dosage: PATIENT WAS TREATED WITH PIOGLITAZONE TILL 40 YEARS OF HIS AGE
     Route: 048
     Dates: end: 2009
  4. GLICLAZIDE [Concomitant]
     Active Substance: GLICLAZIDE
     Indication: TYPE 2 DIABETES MELLITUS
     Route: 048
     Dates: start: 2004, end: 201803
  5. METFORMIN [Suspect]
     Active Substance: METFORMIN HYDROCHLORIDE
     Dates: start: 201904
  6. GLIMEPIRIDE. [Suspect]
     Active Substance: GLIMEPIRIDE
     Indication: TYPE 2 DIABETES MELLITUS
     Route: 048
     Dates: end: 201803
  7. METFORMIN [Suspect]
     Active Substance: METFORMIN HYDROCHLORIDE
     Dates: start: 2009, end: 201803
  8. METFORMIN [Suspect]
     Active Substance: METFORMIN HYDROCHLORIDE
     Dates: start: 201810

REACTIONS (1)
  - Diabetes mellitus inadequate control [Recovered/Resolved]
